FAERS Safety Report 5254209-8 (Version None)
Quarter: 2007Q1

REPORT INFORMATION
  Report Type: 
  Country: None (occurrence: None)
  Receive Date: 20061201
  Receipt Date: 20060814
  Transmission Date: 20070707
  Serious: No
  Sender: FDA-Public Use
  Company Number: 2006PV019378

PATIENT
  Age: 55 Year
  Sex: Female

DRUGS (5)
  1. BYETTA [Suspect]
     Indication: DIABETES MELLITUS NON-INSULIN-DEPENDENT
     Dosage: 5 MCG;BID;SC
     Route: 058
     Dates: start: 20060810
  2. LANTUS [Concomitant]
  3. GLUCOPHAGE [Concomitant]
  4. GLYNASE [Concomitant]
  5. AVANDIA [Concomitant]

REACTIONS (6)
  - BLOOD GLUCOSE DECREASED [None]
  - CHILLS [None]
  - ERUCTATION [None]
  - NAUSEA [None]
  - TREMOR [None]
  - VOMITING [None]
